FAERS Safety Report 5133519-9 (Version None)
Quarter: 2006Q4

REPORT INFORMATION
  Report Type: 
  Country: None (occurrence: None)
  Receive Date: 20061024
  Receipt Date: 20061011
  Transmission Date: 20070319
  Serious: Yes (Hospitalization)
  Sender: FDA-Public Use
  Company Number: NL-AMGEN-UK196766

PATIENT
  Sex: Female

DRUGS (3)
  1. KINERET [Suspect]
     Indication: JUVENILE ARTHRITIS
     Route: 058
     Dates: start: 20051101, end: 20060601
  2. PREDNISOLONE [Concomitant]
  3. NSAID [Concomitant]

REACTIONS (3)
  - EPSTEIN-BARR VIRUS TEST POSITIVE [None]
  - ILEAL PERFORATION [None]
  - JEJUNAL PERFORATION [None]
